FAERS Safety Report 8767294 (Version 1)
Quarter: 2012Q4

REPORT INFORMATION
  Report Type: 
  Country: JP (occurrence: JP)
  Receive Date: 20120904
  Receipt Date: 20120904
  Transmission Date: 20130627
  Serious: Yes (Hospitalization)
  Sender: FDA-Public Use
  Company Number: JP-GLAXOSMITHKLINE-B0827242A

PATIENT
  Age: 78 Year
  Sex: Male

DRUGS (1)
  1. VALTREX [Suspect]
     Indication: HERPES ZOSTER
     Dosage: 1000MG Three times per day
     Route: 048
     Dates: start: 20120820, end: 20120820

REACTIONS (5)
  - Abnormal behaviour [Not Recovered/Not Resolved]
  - Delirium [Not Recovered/Not Resolved]
  - Confusional state [Not Recovered/Not Resolved]
  - Psychiatric symptom [Unknown]
  - Disorientation [Unknown]
